FAERS Safety Report 12142739 (Version 3)
Quarter: 2016Q2

REPORT INFORMATION
  Report Type: Report from Study
  Country: US (occurrence: US)
  Receive Date: 20160303
  Receipt Date: 20160401
  Transmission Date: 20160815
  Serious: Yes (Hospitalization)
  Sender: FDA-Public Use
  Company Number: US-BIOGEN-2016BI00194721

PATIENT
  Sex: Female

DRUGS (1)
  1. TYSABRI [Suspect]
     Active Substance: NATALIZUMAB
     Indication: MULTIPLE SCLEROSIS
     Dosage: INFUSED OVER 1 HOUR
     Route: 042
     Dates: start: 20150318, end: 20160128

REACTIONS (13)
  - Motor dysfunction [Not Recovered/Not Resolved]
  - Multiple sclerosis relapse [Recovered/Resolved]
  - Muscular weakness [Unknown]
  - Mobility decreased [Not Recovered/Not Resolved]
  - General physical health deterioration [Not Recovered/Not Resolved]
  - Eyelid ptosis [Recovered/Resolved]
  - Cognitive disorder [Unknown]
  - Incontinence [Not Recovered/Not Resolved]
  - Drug ineffective [Not Recovered/Not Resolved]
  - General symptom [Not Recovered/Not Resolved]
  - Primary progressive multiple sclerosis [Not Recovered/Not Resolved]
  - Off label use [Not Recovered/Not Resolved]
  - Disturbance in attention [Not Recovered/Not Resolved]
